FAERS Safety Report 21724032 (Version 1)
Quarter: 2022Q4

REPORT INFORMATION
  Report Type: Spontaneous
  Country: US (occurrence: US)
  Receive Date: 20221213
  Receipt Date: 20221213
  Transmission Date: 20230113
  Serious: No
  Sender: FDA-Public Use
  Company Number: US-SUNOVION-2022SUN003405

PATIENT
  Age: 54 Year
  Sex: Male

DRUGS (1)
  1. KYNMOBI [Suspect]
     Active Substance: APOMORPHINE HYDROCHLORIDE
     Indication: Parkinson^s disease
     Dosage: 25 MG, AS NECESSARY (EVERY 2 HOURS UP TO 5 TIMES PER DAY AS NEEDED)
     Route: 060

REACTIONS (1)
  - Oral mucosal blistering [Unknown]

NARRATIVE: CASE EVENT DATE: 20221209
